FAERS Safety Report 4281987-7 (Version None)
Quarter: 2004Q1

REPORT INFORMATION
  Report Type: 
  Country: None (occurrence: None)
  Receive Date: 20040128
  Receipt Date: 20040119
  Transmission Date: 20041129
  Serious: Yes (Hospitalization, Other)
  Sender: FDA-Public Use
  Company Number: 200320023US

PATIENT
  Age: 65 Year
  Sex: Male
  Weight: 104.5 kg

DRUGS (7)
  1. LASIX [Suspect]
     Dosage: 40 MG QD PO
     Route: 048
     Dates: start: 20030711
  2. INTERFERON GAMMA-1B SOLUTION FOR INJECTION [Suspect]
     Indication: INTERSTITIAL LUNG DISEASE
     Dosage: 200 UG 3XW SC
     Route: 058
     Dates: start: 20021120, end: 20030818
  3. ALDACTAZIDE [Concomitant]
  4. PREDNISONE [Concomitant]
  5. GLUCOVANCE [Concomitant]
  6. INSULIN [Concomitant]
  7. CELEXA [Concomitant]

REACTIONS (4)
  - ACCIDENTAL OVERDOSE [None]
  - ELECTROLYTE IMBALANCE [None]
  - LOSS OF CONSCIOUSNESS [None]
  - MEDICATION ERROR [None]
